FAERS Safety Report 4498247-1 (Version None)
Quarter: 2004Q3

REPORT INFORMATION
  Report Type: 
  Country: None (occurrence: None)
  Receive Date: 20040927
  Receipt Date: 20040609
  Transmission Date: 20050211
  Serious: No
  Sender: FDA-Public Use
  Company Number: USA040669734

PATIENT
  Age: 8 Year
  Sex: Male
  Weight: 27 kg

DRUGS (1)
  1. STRATTERA [Suspect]
     Indication: ATTENTION DEFICIT/HYPERACTIVITY DISORDER
     Dosage: 18 MG DAY
     Dates: start: 20040519

REACTIONS (6)
  - DIZZINESS [None]
  - FEELING HOT [None]
  - INITIAL INSOMNIA [None]
  - MOOD SWINGS [None]
  - SOMNOLENCE [None]
  - TEMPERATURE INTOLERANCE [None]
